FAERS Safety Report 7081485-1 (Version None)
Quarter: 2010Q4

REPORT INFORMATION
  Report Type: 
  Country: None (occurrence: None)
  Receive Date: 20101103
  Receipt Date: 20101025
  Transmission Date: 20110411
  Serious: Yes (Hospitalization)
  Sender: FDA-Public Use
  Company Number: FR-ASTRAZENECA-2010SE50967

PATIENT
  Age: 31080 Day
  Sex: Female

DRUGS (10)
  1. CRESTOR [Suspect]
     Route: 048
     Dates: start: 20100910, end: 20100927
  2. PLAVIX [Suspect]
     Route: 048
     Dates: start: 20100910, end: 20101001
  3. TRIATEC [Suspect]
     Route: 048
     Dates: start: 20100910, end: 20100927
  4. POLARAMINE [Suspect]
     Route: 048
     Dates: start: 20100910, end: 20100927
  5. DIAMICRON [Suspect]
     Route: 048
     Dates: end: 20100925
  6. OMACOR [Concomitant]
     Route: 048
     Dates: start: 20100910
  7. LASIX [Concomitant]
     Route: 048
  8. NISISCO [Concomitant]
     Route: 048
  9. CARDENSIEL [Concomitant]
     Route: 048
  10. KARDEGIC [Concomitant]
     Route: 048

REACTIONS (1)
  - AGRANULOCYTOSIS [None]
